FAERS Safety Report 6239978-2 (Version None)
Quarter: 2009Q2

REPORT INFORMATION
  Report Type: 
  Country: None (occurrence: None)
  Receive Date: 20090623
  Receipt Date: 20090310
  Transmission Date: 20091009
  Serious: No
  Sender: FDA-Public Use
  Company Number: US-BAYER-200915713NA

PATIENT
  Sex: Female

DRUGS (1)
  1. MIRENA [Suspect]
     Indication: CONTRACEPTION
     Dosage: CONTINUOUS
     Route: 015
     Dates: start: 20071011, end: 20090309

REACTIONS (4)
  - ABDOMINAL PAIN LOWER [None]
  - AMENORRHOEA [None]
  - INTRA-UTERINE CONTRACEPTIVE DEVICE EXPELLED [None]
  - VAGINAL HAEMORRHAGE [None]
